FAERS Safety Report 12611936 (Version 2)
Quarter: 2016Q3

REPORT INFORMATION
  Report Type: Spontaneous
  Country: JM (occurrence: JM)
  Receive Date: 20160801
  Receipt Date: 20160830
  Transmission Date: 20161109
  Serious: Yes (Hospitalization, Other)
  Sender: FDA-Public Use
  Company Number: JM-JNJFOC-20160726680

PATIENT
  Sex: Female

DRUGS (5)
  1. VYTORIN [Concomitant]
     Active Substance: EZETIMIBE\SIMVASTATIN
     Indication: BLOOD CHOLESTEROL INCREASED
     Route: 065
  2. HEPARIN [Concomitant]
     Active Substance: HEPARIN SODIUM
     Route: 065
  3. PRETERAX [Concomitant]
     Active Substance: INDAPAMIDE\PERINDOPRIL
     Indication: HYPERTENSION
     Route: 065
  4. XARELTO [Suspect]
     Active Substance: RIVAROXABAN
     Indication: EMBOLISM VENOUS
     Route: 048
     Dates: start: 20160626, end: 20160628
  5. XARELTO [Suspect]
     Active Substance: RIVAROXABAN
     Indication: DEEP VEIN THROMBOSIS
     Route: 048
     Dates: start: 20160626, end: 20160628

REACTIONS (4)
  - International normalised ratio increased [Unknown]
  - Pulmonary embolism [Unknown]
  - Dyspnoea [Unknown]
  - Chest pain [Unknown]

NARRATIVE: CASE EVENT DATE: 20160628
